FAERS Safety Report 10367571 (Version 1)
Quarter: 2014Q3

REPORT INFORMATION
  Report Type: Spontaneous
  Country: US (occurrence: US)
  Receive Date: 20140807
  Receipt Date: 20140807
  Transmission Date: 20150326
  Serious: No
  Sender: FDA-Public Use
  Company Number: US-TARO-2013P1020663

PATIENT
  Age: 72 Year
  Sex: Female
  Weight: 74.84 kg

DRUGS (4)
  1. UNSPECIFIED PILLS FOR LIVER [Concomitant]
  2. UNSPECIFIED PILLS FOR KIDNEY [Concomitant]
  3. DESONIDE CREAM USP 0.05% [Suspect]
     Active Substance: DESONIDE
     Dosage: BID
     Route: 061
     Dates: start: 201309
  4. UNSPECIFIED DIABETIC MEDICATION [Concomitant]

REACTIONS (1)
  - Sunburn [Not Recovered/Not Resolved]

NARRATIVE: CASE EVENT DATE: 2013
